FAERS Safety Report 14188047 (Version 4)
Quarter: 2018Q1

REPORT INFORMATION
  Report Type: Spontaneous
  Country: NO (occurrence: NO)
  Receive Date: 20171114
  Receipt Date: 20180223
  Transmission Date: 20180508
  Serious: Yes (Other)
  Sender: FDA-Public Use
  Company Number: NO-PFIZER INC-2017481539

PATIENT
  Age: 72 Year
  Sex: Female

DRUGS (7)
  1. FENTANYL. [Suspect]
     Active Substance: FENTANYL
     Indication: PAIN
     Dosage: 100 UG/H
     Route: 062
  2. PREGABALIN. [Suspect]
     Active Substance: PREGABALIN
     Indication: ARTHRALGIA
     Dosage: 450 MG, DAILY
  3. ACETYLSALICYLIC ACID [Suspect]
     Active Substance: ASPIRIN
     Dosage: 75 MG, DAILY
  4. ATORVASTATIN [Concomitant]
     Active Substance: ATORVASTATIN
     Indication: BLOOD CHOLESTEROL INCREASED
     Dosage: 40 MG, DAILY
  5. LANZOPRAZOL [Concomitant]
     Active Substance: LANSOPRAZOLE
     Indication: DYSPEPSIA
     Dosage: 30 MG, 2X/DAY (30 MGX 2 (SIC) DAILY)
  6. PREGABALIN. [Suspect]
     Active Substance: PREGABALIN
     Indication: BACK PAIN
     Dosage: 75 MG, 2X/DAY
  7. DICLOFENAC [Suspect]
     Active Substance: DICLOFENAC
     Indication: PAIN
     Dosage: 50 MG, 3X/DAY

REACTIONS (9)
  - Constipation [Recovering/Resolving]
  - Dyspepsia [Unknown]
  - Somnolence [Recovered/Resolved]
  - Renal impairment [Unknown]
  - Head titubation [Recovered/Resolved]
  - Toxicity to various agents [Recovered/Resolved]
  - Impaired gastric emptying [Unknown]
  - Hyperhidrosis [Unknown]
  - Sleep apnoea syndrome [Recovering/Resolving]
